FAERS Safety Report 5416092-7 (Version None)
Quarter: 2007Q3

REPORT INFORMATION
  Report Type: 
  Country: None (occurrence: None)
  Receive Date: 20070718
  Receipt Date: 20070306
  Transmission Date: 20080115
  Serious: Yes (Death, Other)
  Sender: FDA-Public Use
  Company Number: 2007018766

PATIENT
  Sex: Male

DRUGS (1)
  1. CELEBREX [Suspect]
     Indication: PAIN
     Dosage: (200 MG, 1 D), ORAL
     Route: 048
     Dates: start: 20000522

REACTIONS (2)
  - MYOCARDIAL INFARCTION [None]
  - SHOCK [None]
